FAERS Safety Report 8487250-2 (Version None)
Quarter: 2012Q3

REPORT INFORMATION
  Report Type: 
  Country: None (occurrence: None)
  Receive Date: 20120705
  Receipt Date: 20120702
  Transmission Date: 20120928
  Serious: No
  Sender: FDA-Public Use
  Company Number: US-BIOGENIDEC-2012BI023503

PATIENT
  Age: 68 Year
  Sex: Female

DRUGS (3)
  1. AVONEX [Suspect]
     Indication: MULTIPLE SCLEROSIS
     Route: 030
     Dates: start: 20030101, end: 20120601
  2. AVONEX [Suspect]
     Route: 030
     Dates: start: 20010424, end: 20030101
  3. AVONEX [Suspect]
     Route: 030
     Dates: start: 20120618

REACTIONS (2)
  - UNDERDOSE [None]
  - INJECTION SITE HAEMATOMA [None]
